FAERS Safety Report 15283523 (Version 1)
Quarter: 2018Q3

REPORT INFORMATION
  Report Type: Spontaneous
  Country: CA (occurrence: CA)
  Receive Date: 20180816
  Receipt Date: 20180816
  Transmission Date: 20181010
  Serious: Yes (Hospitalization)
  Sender: FDA-Public Use
  Company Number: CA-CELLTRION INC.-2018CA021867

PATIENT

DRUGS (3)
  1. INFLECTRA [Suspect]
     Active Substance: INFLIXIMAB-DYYB
     Indication: PSORIATIC ARTHROPATHY
     Dosage: 500 MG, CYCLIC (EVERY 0,2,WEEKS THEN EVERY 8 WEEKS);
     Route: 042
     Dates: start: 20180605
  2. INFLECTRA [Suspect]
     Active Substance: INFLIXIMAB-DYYB
     Dosage: 500 MG, CYCLIC (EVERY 0,2,WEEKS THEN EVERY 8 WEEKS);
     Route: 042
     Dates: start: 20180620
  3. INFLECTRA [Suspect]
     Active Substance: INFLIXIMAB-DYYB
     Dosage: 500 MG, CYCLIC (EVERY 0,2,WEEKS THEN EVERY 8 WEEKS);
     Route: 042
     Dates: start: 20180801

REACTIONS (2)
  - Product use issue [Unknown]
  - Back pain [Unknown]

NARRATIVE: CASE EVENT DATE: 20180801
